FAERS Safety Report 9056159 (Version 1)
Quarter: 2013Q1

REPORT INFORMATION
  Report Type: Spontaneous
  Country: US (occurrence: US)
  Receive Date: 20130205
  Receipt Date: 20130205
  Transmission Date: 20140127
  Serious: Yes (Other)
  Sender: FDA-Public Use
  Company Number: US-PFIZER INC-2013045181

PATIENT
  Sex: Female

DRUGS (2)
  1. CELEBREX [Suspect]
     Indication: ARTHRALGIA
     Dosage: UNK
  2. CRESTOR [Suspect]
     Dosage: UNK

REACTIONS (6)
  - Diabetes mellitus [Unknown]
  - Cushing^s syndrome [Unknown]
  - Drug ineffective [Unknown]
  - Fibromyalgia [Unknown]
  - Weight increased [Unknown]
  - Drug hypersensitivity [Unknown]
